FAERS Safety Report 12270707 (Version 1)
Quarter: 2016Q2

REPORT INFORMATION
  Report Type: Spontaneous
  Country: US (occurrence: None)
  Receive Date: 20160414
  Receipt Date: 20160414
  Transmission Date: 20160815
  Serious: Yes (Hospitalization)
  Sender: FDA-Public Use
  Company Number: None

PATIENT
  Age: 49 Year
  Sex: Female
  Weight: 49.9 kg

DRUGS (25)
  1. TYLENOL ARTHRITIS PAIN [Suspect]
     Active Substance: ACETAMINOPHEN
  2. MELATONIN [Concomitant]
     Active Substance: MELATONIN
  3. MULTI VIT [Concomitant]
  4. BIOTIN [Concomitant]
     Active Substance: BIOTIN
  5. METAMUCIL [Concomitant]
     Active Substance: PLANTAGO SEED
  6. MELOXICAM. [Concomitant]
     Active Substance: MELOXICAM
  7. CHLORTRIMITON [Concomitant]
  8. MSM [Concomitant]
     Active Substance: DIMETHYL SULFONE
  9. ZOLEDRONIC [Suspect]
     Active Substance: ZOLEDRONIC ACID
     Indication: OSTEOPOROSIS
     Dosage: 5MG/100ML ONE ONCE A YEAR I.V.
     Route: 042
     Dates: start: 20160314
  10. ROBAXIN [Concomitant]
     Active Substance: METHOCARBAMOL
  11. VENTOLIN [Concomitant]
     Active Substance: ALBUTEROL SULFATE
  12. GARLIC. [Concomitant]
     Active Substance: GARLIC
  13. EVENING PRIMROSE OIL [Concomitant]
     Active Substance: EVENING PRIMROSE OIL
  14. ESTER C [Concomitant]
  15. VITAMIN B12 [Concomitant]
     Active Substance: CYANOCOBALAMIN
  16. MUCINEX [Concomitant]
     Active Substance: GUAIFENESIN
  17. FLAXSEED [Concomitant]
     Active Substance: FLAX SEED
  18. B 6 [Concomitant]
  19. ZINC [Concomitant]
     Active Substance: ZINC\ZINC CHLORIDE
  20. MAGNESIUM [Concomitant]
     Active Substance: MAGNESIUM
  21. GABAPENTIN. [Concomitant]
     Active Substance: GABAPENTIN
  22. PRAVASTATIN [Concomitant]
     Active Substance: PRAVASTATIN\PRAVASTATIN SODIUM
  23. FIROCET [Concomitant]
  24. FISH OIL [Concomitant]
     Active Substance: FISH OIL
  25. OMEPRAZOLE. [Concomitant]
     Active Substance: OMEPRAZOLE

REACTIONS (9)
  - Pain in jaw [None]
  - Headache [None]
  - Dyspnoea [None]
  - Tremor [None]
  - Pain [None]
  - Nausea [None]
  - Asthenia [None]
  - Heart rate increased [None]
  - Blood pressure increased [None]

NARRATIVE: CASE EVENT DATE: 20160315
